FAERS Safety Report 12931202 (Version 1)
Quarter: 2016Q4

REPORT INFORMATION
  Report Type: Spontaneous
  Country: US (occurrence: US)
  Receive Date: 20161110
  Receipt Date: 20161110
  Transmission Date: 20170207
  Serious: No
  Sender: FDA-Public Use
  Company Number: US-JAZZ-2016-US-018017

PATIENT
  Sex: Female

DRUGS (24)
  1. TRAZODONE [Concomitant]
     Active Substance: TRAZODONE HYDROCHLORIDE
  2. ZANTAC [Concomitant]
     Active Substance: RANITIDINE HYDROCHLORIDE
  3. XYREM [Suspect]
     Active Substance: SODIUM OXYBATE
     Indication: NARCOLEPSY
     Dosage: 3 G, BID
     Route: 048
     Dates: start: 201604, end: 201608
  4. ADDERALL [Concomitant]
     Active Substance: AMPHETAMINE ASPARTATE\AMPHETAMINE SULFATE\DEXTROAMPHETAMINE SACCHARATE\DEXTROAMPHETAMINE SULFATE
  5. PERCOCET [Concomitant]
     Active Substance: ACETAMINOPHEN\OXYCODONE HYDROCHLORIDE
  6. ANTIVERT                           /00007101/ [Concomitant]
     Active Substance: MECLIZINE MONOHYDROCHLORIDE\NIACIN
  7. RANITIDINE. [Concomitant]
     Active Substance: RANITIDINE
  8. XYREM [Suspect]
     Active Substance: SODIUM OXYBATE
     Indication: CATAPLEXY
     Dosage: 3.5 G, BID
     Route: 048
     Dates: start: 201608
  9. NUVIGIL [Concomitant]
     Active Substance: ARMODAFINIL
  10. ALPRAZOLAM. [Concomitant]
     Active Substance: ALPRAZOLAM
  11. MIRAPEX [Concomitant]
     Active Substance: PRAMIPEXOLE DIHYDROCHLORIDE
  12. MOBIC [Concomitant]
     Active Substance: MELOXICAM
  13. MECLIZINE HYDROCHLORIDE. [Concomitant]
     Active Substance: MECLIZINE HYDROCHLORIDE
  14. BENTYL [Concomitant]
     Active Substance: DICYCLOMINE HYDROCHLORIDE
  15. IMODIUM [Concomitant]
     Active Substance: LOPERAMIDE HYDROCHLORIDE
  16. PROPRANOLOL [Concomitant]
     Active Substance: PROPRANOLOL\PROPRANOLOL HYDROCHLORIDE
  17. ZANAFLEX [Concomitant]
     Active Substance: TIZANIDINE HYDROCHLORIDE
  18. BELSOMRA [Concomitant]
     Active Substance: SUVOREXANT
  19. XANAX [Concomitant]
     Active Substance: ALPRAZOLAM
  20. AMBIEN [Concomitant]
     Active Substance: ZOLPIDEM TARTRATE
  21. GABAPENTIN. [Concomitant]
     Active Substance: GABAPENTIN
  22. AMITRIPTYLINE HCL [Concomitant]
     Active Substance: AMITRIPTYLINE
  23. TIZANIDINE HCL [Concomitant]
     Active Substance: TIZANIDINE HYDROCHLORIDE
  24. CHANTIX [Concomitant]
     Active Substance: VARENICLINE TARTRATE

REACTIONS (1)
  - Initial insomnia [Not Recovered/Not Resolved]

NARRATIVE: CASE EVENT DATE: 2016
